FAERS Safety Report 8537773-2 (Version None)
Quarter: 2012Q3

REPORT INFORMATION
  Report Type: 
  Country: None (occurrence: None)
  Receive Date: 20120725
  Receipt Date: 20120718
  Transmission Date: 20120928
  Serious: Yes (Other)
  Sender: FDA-Public Use
  Company Number: US-PFIZER INC-2012174825

PATIENT
  Sex: Female
  Weight: 90.703 kg

DRUGS (2)
  1. KLONOPIN [Concomitant]
     Dosage: UNK
  2. PRISTIQ [Suspect]
     Indication: DEPRESSION
     Dosage: UNK, DAILY
     Dates: start: 20120101

REACTIONS (1)
  - CLOSTRIDIAL INFECTION [None]
